FAERS Safety Report 16167554 (Version 2)
Quarter: 2019Q3

REPORT INFORMATION
  Report Type: Spontaneous
  Country: CA (occurrence: CA)
  Receive Date: 20190408
  Receipt Date: 20190819
  Transmission Date: 20191004
  Serious: Yes (Hospitalization, Other)
  Sender: FDA-Public Use
  Company Number: CA-SA-2019SA094530

PATIENT
  Age: 44 Year
  Sex: Male

DRUGS (6)
  1. ETANERCEPT [Suspect]
     Active Substance: ETANERCEPT
     Indication: IMMUNOSUPPRESSION
     Dosage: 50 MG, UNK
     Route: 065
     Dates: start: 2012
  2. ANAKINRA [Suspect]
     Active Substance: ANAKINRA
     Indication: IMMUNOSUPPRESSION
     Dosage: 100 MG, UNK
     Route: 065
     Dates: start: 2012
  3. ALEMTUZUMAB [Suspect]
     Active Substance: ALEMTUZUMAB
     Indication: IMMUNOSUPPRESSION
     Dosage: 30 MG, UNK
     Route: 041
     Dates: start: 2012
  4. SIROLIMUS. [Suspect]
     Active Substance: SIROLIMUS
     Indication: IMMUNOSUPPRESSION
     Dosage: UNK UNK, UNK
     Route: 065
  5. TACROLIMUS. [Suspect]
     Active Substance: TACROLIMUS
     Indication: IMMUNOSUPPRESSION
     Dosage: UNK UNK, UNK
     Route: 065
     Dates: start: 201209
  6. MYCOPHENOLATE MOFETIL. [Suspect]
     Active Substance: MYCOPHENOLATE MOFETIL
     Indication: IMMUNOSUPPRESSION
     Dosage: 1 G, BID
     Route: 041
     Dates: start: 201209

REACTIONS (11)
  - Off label use [Unknown]
  - Abdominal pain [Recovered/Resolved]
  - Gait disturbance [Unknown]
  - Post transplant lymphoproliferative disorder [Unknown]
  - Diplopia [Unknown]
  - Vertigo [Unknown]
  - Post transplant lymphoproliferative disorder [Recovered/Resolved]
  - Headache [Unknown]
  - Diffuse large B-cell lymphoma [Recovering/Resolving]
  - Diarrhoea haemorrhagic [Recovered/Resolved]
  - Weight decreased [Recovered/Resolved]
